FAERS Safety Report 7576286-1 (Version None)
Quarter: 2011Q2

REPORT INFORMATION
  Report Type: 
  Country: None (occurrence: None)
  Receive Date: 20110628
  Receipt Date: 20110131
  Transmission Date: 20111010
  Serious: Yes (Hospitalization, Other)
  Sender: FDA-Public Use
  Company Number: US-BAYER-201037965NA

PATIENT
  Age: 41 Year
  Sex: Female
  Weight: 70.295 kg

DRUGS (18)
  1. YASMIN [Suspect]
     Indication: PREMENSTRUAL SYNDROME
     Route: 048
     Dates: start: 20051001
  2. ZANTAC [Concomitant]
     Indication: PRODUCT USED FOR UNKNOWN INDICATION
  3. MIDRIN [Concomitant]
     Indication: MIGRAINE
  4. YASMIN [Suspect]
     Dosage: UNK
     Dates: start: 20050101, end: 20090101
  5. DEMEROL [Concomitant]
     Indication: PRODUCT USED FOR UNKNOWN INDICATION
  6. ZELNORM [Concomitant]
     Indication: PRODUCT USED FOR UNKNOWN INDICATION
  7. VERSED [Concomitant]
     Indication: PRODUCT USED FOR UNKNOWN INDICATION
  8. MULTI-VITAMIN [Concomitant]
  9. NEXIUM [Concomitant]
     Indication: PRODUCT USED FOR UNKNOWN INDICATION
  10. KEFLEX [Concomitant]
  11. REGLAN [Concomitant]
  12. DIURETICS [Concomitant]
  13. ZYRTEC [Concomitant]
     Indication: PRODUCT USED FOR UNKNOWN INDICATION
  14. GARLIC [Concomitant]
  15. NAPROXEN SODIUM + PSEUDOEPHEDRINE [Concomitant]
  16. PREVACID [Concomitant]
  17. LOVAZA [Concomitant]
  18. PEPCID [Concomitant]

REACTIONS (5)
  - GALLBLADDER CHOLESTEROLOSIS [None]
  - GALLBLADDER INJURY [None]
  - CHOLECYSTITIS CHRONIC [None]
  - CHOLELITHIASIS [None]
  - OESOPHAGEAL ACHALASIA [None]
